FAERS Safety Report 6146654-3 (Version None)
Quarter: 2009Q2

REPORT INFORMATION
  Report Type: 
  Country: None (occurrence: None)
  Receive Date: 20090403
  Receipt Date: 20090403
  Transmission Date: 20091009
  Serious: Yes (Other)
  Sender: FDA-Public Use
  Company Number: None

PATIENT
  Age: 77 Year
  Sex: Male
  Weight: 77.34 kg

DRUGS (1)
  1. BUPIVACAINE [Suspect]
     Indication: SPINAL ANAESTHESIA
     Dosage: ONCE OTHER
     Route: 050
     Dates: start: 20081212, end: 20081212

REACTIONS (3)
  - ANAESTHETIC COMPLICATION [None]
  - MUSCULAR WEAKNESS [None]
  - NEUROMUSCULAR BLOCK PROLONGED [None]
